FAERS Safety Report 20910330 (Version 3)
Quarter: 2022Q4

REPORT INFORMATION
  Report Type: Spontaneous
  Country: JP (occurrence: JP)
  Receive Date: 20220603
  Receipt Date: 20221007
  Transmission Date: 20230113
  Serious: Yes (Other)
  Sender: FDA-Public Use
  Company Number: JP-MH-2022M1041260AA

PATIENT
  Age: 78 Year
  Sex: Female

DRUGS (24)
  1. CARBOPLATIN [Suspect]
     Active Substance: CARBOPLATIN
     Indication: Ovarian cancer recurrent
     Dosage: 400 MILLIGRAM
     Route: 042
     Dates: start: 20220420, end: 20220420
  2. CARBOPLATIN [Suspect]
     Active Substance: CARBOPLATIN
     Dosage: 360 MILLIGRAM
     Route: 042
     Dates: start: 20220511, end: 20220511
  3. CARBOPLATIN [Suspect]
     Active Substance: CARBOPLATIN
     Dosage: 330 MILLIGRAM
     Route: 042
     Dates: start: 20220601, end: 20220601
  4. CARBOPLATIN [Suspect]
     Active Substance: CARBOPLATIN
     Dosage: 330 MILLIGRAM
     Route: 042
     Dates: start: 20220622, end: 20220622
  5. CARBOPLATIN [Suspect]
     Active Substance: CARBOPLATIN
     Dosage: 330 MILLIGRAM
     Route: 042
     Dates: start: 20220720, end: 20220720
  6. CARBOPLATIN [Suspect]
     Active Substance: CARBOPLATIN
     Dosage: 330 MILLIGRAM
     Route: 042
     Dates: start: 20220810, end: 20220810
  7. CARBOPLATIN [Suspect]
     Active Substance: CARBOPLATIN
     Dosage: 330 MILLIGRAM
     Route: 042
     Dates: start: 20220907, end: 20220907
  8. PACLITAXEL [Concomitant]
     Active Substance: PACLITAXEL
     Indication: Ovarian cancer recurrent
     Dosage: 260 MILLIGRAM
     Route: 042
     Dates: start: 20220420, end: 20220420
  9. PACLITAXEL [Concomitant]
     Active Substance: PACLITAXEL
     Dosage: 200 MILLIGRAM
     Route: 042
     Dates: start: 20220511, end: 20220511
  10. PACLITAXEL [Concomitant]
     Active Substance: PACLITAXEL
     Dosage: 190 MILLIGRAM
     Route: 042
     Dates: start: 20220601, end: 20220601
  11. PACLITAXEL [Concomitant]
     Active Substance: PACLITAXEL
     Dosage: 190 MILLIGRAM
     Route: 042
     Dates: start: 20220622, end: 20220622
  12. PACLITAXEL [Concomitant]
     Active Substance: PACLITAXEL
     Dosage: 190 MILLIGRAM
     Route: 042
     Dates: start: 20220720, end: 20220720
  13. PACLITAXEL [Concomitant]
     Active Substance: PACLITAXEL
     Dosage: 190 MILLIGRAM
     Route: 042
     Dates: start: 20220810, end: 20220810
  14. PACLITAXEL [Concomitant]
     Active Substance: PACLITAXEL
     Dosage: 190 MILLIGRAM
     Route: 042
     Dates: start: 20220907, end: 20220907
  15. BEVACIZUMAB [Concomitant]
     Active Substance: BEVACIZUMAB
     Indication: Ovarian cancer recurrent
     Dosage: 600 MILLIGRAM
     Route: 065
     Dates: start: 20220622, end: 20220622
  16. BEVACIZUMAB [Concomitant]
     Active Substance: BEVACIZUMAB
     Dosage: 600 MILLIGRAM
     Route: 065
     Dates: start: 20220720, end: 20220720
  17. BEVACIZUMAB [Concomitant]
     Active Substance: BEVACIZUMAB
     Dosage: 600 MILLIGRAM
     Route: 065
     Dates: start: 20220810, end: 20220810
  18. BEVACIZUMAB [Concomitant]
     Active Substance: BEVACIZUMAB
     Dosage: 600 MILLIGRAM
     Route: 065
     Dates: start: 20220907, end: 20220907
  19. BEVACIZUMAB [Concomitant]
     Active Substance: BEVACIZUMAB
     Dosage: UNK
     Route: 065
     Dates: start: 20220928
  20. SODIUM CHLORIDE [Concomitant]
     Active Substance: SODIUM CHLORIDE
     Indication: Hyponatraemia
     Dosage: INFUSION
     Route: 065
     Dates: start: 20220426
  21. SODIUM CHLORIDE [Concomitant]
     Active Substance: SODIUM CHLORIDE
     Dosage: 6 GRAM, QD
     Route: 048
     Dates: start: 20220426
  22. SODIUM CHLORIDE [Concomitant]
     Active Substance: SODIUM CHLORIDE
     Dosage: 6 GRAM, QD
     Route: 048
     Dates: start: 20220517
  23. SODIUM CHLORIDE [Concomitant]
     Active Substance: SODIUM CHLORIDE
     Dosage: 6 GRAM, QD
     Route: 048
     Dates: start: 20220606
  24. SODIUM CHLORIDE [Concomitant]
     Active Substance: SODIUM CHLORIDE
     Dosage: 6 GRAM, QD
     Route: 048
     Dates: start: 20220816

REACTIONS (2)
  - Renal tubular disorder [Recovered/Resolved]
  - Hyponatraemia [Recovered/Resolved]

NARRATIVE: CASE EVENT DATE: 20220426
